FAERS Safety Report 10221331 (Version 1)
Quarter: 2014Q2

REPORT INFORMATION
  Report Type: Spontaneous
  Country: US (occurrence: US)
  Receive Date: 20140606
  Receipt Date: 20140606
  Transmission Date: 20141212
  Serious: No
  Sender: FDA-Public Use
  Company Number: US-GLAXOSMITHKLINE-A1072636A

PATIENT
  Age: 69 Year
  Sex: Female

DRUGS (5)
  1. BREO ELLIPTA [Suspect]
     Indication: CHRONIC OBSTRUCTIVE PULMONARY DISEASE
     Dosage: 1PUFF PER DAY
     Route: 055
     Dates: start: 20140413
  2. NEOMYCINE POLYMYXINE B DEXAMETHASONE [Suspect]
     Indication: EYELID OPERATION
     Dates: start: 20140421
  3. SPIRIVA [Concomitant]
  4. VITAMINS [Concomitant]
  5. ALEVE [Concomitant]

REACTIONS (2)
  - Vision blurred [Recovering/Resolving]
  - Vision blurred [Unknown]
